FAERS Safety Report 16876896 (Version 1)
Quarter: 2019Q4

REPORT INFORMATION
  Report Type: Spontaneous
  Country: US (occurrence: US)
  Receive Date: 20191002
  Receipt Date: 20191002
  Transmission Date: 20200122
  Serious: Yes (Other)
  Sender: FDA-Public Use
  Company Number: None

PATIENT
  Age: 45 Year
  Sex: Female
  Weight: 151 kg

DRUGS (1)
  1. VANCOMYCIN [Suspect]
     Active Substance: VANCOMYCIN
     Indication: INFECTION
     Dosage: ?          OTHER FREQUENCY:EVERY 12 TO 36 H;?
     Route: 042
     Dates: start: 20190727

REACTIONS (3)
  - Drug reaction with eosinophilia and systemic symptoms [None]
  - Rash erythematous [None]
  - Pyrexia [None]

NARRATIVE: CASE EVENT DATE: 20190727
